FAERS Safety Report 5246691-7 (Version None)
Quarter: 2007Q1

REPORT INFORMATION
  Report Type: 
  Country: None (occurrence: None)
  Receive Date: 20070226
  Receipt Date: 20070214
  Transmission Date: 20070707
  Serious: Yes (Death, Other)
  Sender: FDA-Public Use
  Company Number: JP-BRISTOL-MYERS SQUIBB COMPANY-13608039

PATIENT
  Age: 44 Year
  Sex: Male

DRUGS (5)
  1. ZERIT [Suspect]
     Indication: HIV INFECTION
     Dosage: DOSED FROM 27-AUG-1998 TO 09-FEB-1999, RESTARTED ON 05-MAR-1999 TO 14-AUG-2000.
     Route: 048
     Dates: start: 19980827
  2. VIDEX EC [Concomitant]
     Indication: HIV INFECTION
     Route: 048
     Dates: start: 19980827, end: 20000814
  3. VIRACEPT [Concomitant]
     Indication: HIV INFECTION
     Route: 048
     Dates: start: 19980827, end: 20000814
  4. RETROVIR [Concomitant]
     Route: 048
     Dates: start: 19990209, end: 19990305
  5. LAMIVUDINE [Concomitant]
     Route: 048
     Dates: start: 19990209, end: 20000814

REACTIONS (2)
  - ANAEMIA [None]
  - HIV INFECTION [None]
